FAERS Safety Report 24086529 (Version 1)
Quarter: 2024Q3

REPORT INFORMATION
  Report Type: Spontaneous
  Country: DE (occurrence: DE)
  Receive Date: 20240713
  Receipt Date: 20240713
  Transmission Date: 20241016
  Serious: Yes (Congenital Anomaly)
  Sender: TEVA
  Company Number: DE-EMBRYOTOX-202306375

PATIENT
  Age: 1 Day
  Sex: Female
  Weight: 3.18 kg

DRUGS (3)
  1. QUETIAPINE [Suspect]
     Active Substance: QUETIAPINE
     Indication: Bipolar disorder
     Dosage: 25 [MG/D ]/ SINCE 2015, AROUND GW 5 REDUCED TO 12.5 MG FOR A SHORT PERIODE OF TIME
     Route: 064
     Dates: start: 20230629, end: 20240412
  2. COVAXIS [Concomitant]
     Indication: Immunisation
     Route: 064
     Dates: start: 20240212, end: 20240212
  3. LAMOTRIGINE [Suspect]
     Active Substance: LAMOTRIGINE
     Indication: Bipolar disorder
     Dosage: 300 [MG/D ]/ SINCE 2015, 300 MG/D UNTIL GW 5, THEN REDUCED TO 200 MG/D
     Route: 064
     Dates: start: 20230629, end: 20240412

REACTIONS (3)
  - Ventricular septal defect [Unknown]
  - Atrial septal defect [Unknown]
  - Foetal exposure during pregnancy [Unknown]

NARRATIVE: CASE EVENT DATE: 20240401
